FAERS Safety Report 7795401-8 (Version None)
Quarter: 2011Q4

REPORT INFORMATION
  Report Type: 
  Country: None (occurrence: None)
  Receive Date: 20111004
  Receipt Date: 20110928
  Transmission Date: 20120403
  Serious: Yes (Other)
  Sender: FDA-Public Use
  Company Number: US-PFIZER INC-2011231645

PATIENT
  Sex: Male
  Weight: 86.168 kg

DRUGS (5)
  1. SYNTHROID [Concomitant]
     Dosage: UNK
  2. SINGULAIR [Concomitant]
     Dosage: UNK, 1X/DAY
  3. TOVIAZ [Suspect]
     Indication: HYPERTONIC BLADDER
     Dosage: 4 MG, 1X/DAY
     Route: 048
     Dates: start: 20110925
  4. DIOVAN [Concomitant]
     Dosage: UNK
  5. ZOCOR [Concomitant]
     Dosage: UNK

REACTIONS (4)
  - URINE FLOW DECREASED [None]
  - URINARY RETENTION [None]
  - POOR QUALITY SLEEP [None]
  - POLLAKIURIA [None]
